FAERS Safety Report 10722519 (Version 1)
Quarter: 2015Q1

REPORT INFORMATION
  Report Type: Spontaneous
  Country: GB (occurrence: GB)
  Receive Date: 20150120
  Receipt Date: 20150120
  Transmission Date: 20150721
  Serious: Yes (Other)
  Sender: FDA-Public Use
  Company Number: GB-AUROBINDO-AUR-APL-2014-07700

PATIENT
  Age: 38 Year
  Sex: Male
  Weight: 76.2 kg

DRUGS (7)
  1. QUETIAPINE 200MG [Suspect]
     Active Substance: QUETIAPINE
     Indication: DEPRESSION
     Dosage: 25 MG, 3 TIMES A DAY
     Route: 048
     Dates: start: 20131105
  2. MIRTAZAPINE. [Concomitant]
     Active Substance: MIRTAZAPINE
     Indication: DEPRESSION
     Dosage: 45 MG, UNK
     Route: 065
  3. QUETIAPINE 200MG [Suspect]
     Active Substance: QUETIAPINE
     Dosage: 600 MG, ONCE A DAY
     Route: 048
  4. QUETIAPINE 200MG [Suspect]
     Active Substance: QUETIAPINE
     Dosage: 400 MG, ONCE A DAY
     Route: 048
  5. SERTRALINE [Concomitant]
     Active Substance: SERTRALINE HYDROCHLORIDE
     Indication: DEPRESSION
     Dosage: 100 MG, UNK
     Route: 065
  6. CITALOPRAM [Concomitant]
     Active Substance: CITALOPRAM HYDROBROMIDE
     Indication: PRODUCT USED FOR UNKNOWN INDICATION
     Dosage: 40 MG, DAILY
     Route: 065
  7. QUETIAPINE 200MG [Suspect]
     Active Substance: QUETIAPINE
     Dosage: 200 MG, ONCE A DAY, AT NIGHT
     Route: 048
     Dates: end: 20140630

REACTIONS (4)
  - Pain [Unknown]
  - Pain in extremity [Unknown]
  - Tremor [Unknown]
  - Muscle spasms [Unknown]
